FAERS Safety Report 9854915 (Version 1)
Quarter: 2013Q4

REPORT INFORMATION
  Report Type: Spontaneous
  Country: US (occurrence: None)
  Receive Date: 20131226
  Receipt Date: 20131226
  Transmission Date: 20140711
  Serious: Yes (Other)
  Sender: FDA-Public Use
  Company Number: PHEH2013US000553

PATIENT
  Age: 63 Year
  Sex: Female

DRUGS (9)
  1. EXFORGE (VALSARTAN, AMLODIPINE) UNKNOWN [Suspect]
  2. LEXAPRO (ESCITALOPRAM OXALATE) [Concomitant]
  3. LEVOTHYROXINE (LEVOTHYROXINE) [Concomitant]
  4. VERAPAMIL (VERAPAMIL) [Concomitant]
  5. BYSTOLIC (NEBIVOLOL HYDROCHLORIDE) [Concomitant]
  6. METFORMIN (METFORMIN) [Concomitant]
  7. PRAVASTATIN (PRAVASTATIN) [Concomitant]
  8. POTASSIUM (POTASSIUM) [Concomitant]
  9. INDAPAMIDE (INDAPAMIDE) [Concomitant]

REACTIONS (1)
  - Arrhythmia [None]
